FAERS Safety Report 6359246-8 (Version None)
Quarter: 2009Q3

REPORT INFORMATION
  Report Type: 
  Country: None (occurrence: None)
  Receive Date: 20090917
  Receipt Date: 20090909
  Transmission Date: 20100115
  Serious: Yes (Other)
  Sender: FDA-Public Use
  Company Number: PHHY2009JP38529

PATIENT
  Age: 66 Year
  Sex: Female

DRUGS (5)
  1. ZOMETA [Suspect]
     Indication: METASTASES TO BONE
     Dosage: 4 MG, TIW
     Route: 042
     Dates: start: 20070101, end: 20090217
  2. TAXOTERE [Concomitant]
     Dosage: 43 MG, UNK
     Route: 042
     Dates: start: 20090106
  3. FARMORUBICIN [Concomitant]
     Dosage: UNK
     Route: 042
     Dates: start: 20080801, end: 20081220
  4. ENDOXAN [Concomitant]
     Dosage: UNK
     Route: 042
     Dates: start: 20080801, end: 20081220
  5. FLUOROURACIL [Concomitant]
     Dosage: UNK
     Route: 042
     Dates: start: 20080801, end: 20081220

REACTIONS (2)
  - OSTEONECROSIS [None]
  - TOOTH EXTRACTION [None]
